FAERS Safety Report 11160265 (Version 1)
Quarter: 2015Q2

REPORT INFORMATION
  Report Type: Report from Study
  Country: BR (occurrence: BR)
  Receive Date: 20150603
  Receipt Date: 20150603
  Transmission Date: 20150821
  Serious: Yes (Hospitalization, Other)
  Sender: FDA-Public Use
  Company Number: PHHY2015BR063819

PATIENT
  Sex: Male
  Weight: 77 kg

DRUGS (1)
  1. EXELON PATCH [Suspect]
     Active Substance: RIVASTIGMINE
     Indication: PRODUCT USED FOR UNKNOWN INDICATION
     Dosage: PATCH 5 (CM2) OR CONTAINS 9 MG RIVASTIGMINE BASE, QD
     Route: 062
     Dates: start: 20150511

REACTIONS (5)
  - Sensory loss [Recovered/Resolved]
  - Pneumonia [Recovered/Resolved]
  - Infection [Recovered/Resolved]
  - Parkinson^s disease [Recovered/Resolved]
  - Agitation [Recovered/Resolved]
